FAERS Safety Report 12290247 (Version 1)
Quarter: 2016Q2

REPORT INFORMATION
  Report Type: Spontaneous
  Country: US (occurrence: US)
  Receive Date: 20160421
  Receipt Date: 20160421
  Transmission Date: 20160815
  Serious: No
  Sender: FDA-Public Use
  Company Number: US-MISSION PHARMACAL COMPANY-1050820

PATIENT
  Age: 44 Year
  Sex: Female

DRUGS (1)
  1. THIOLA [Suspect]
     Active Substance: TIOPRONIN
     Indication: NEPHROLITHIASIS
     Dates: start: 20141022, end: 20160416

REACTIONS (12)
  - Fatigue [Unknown]
  - Nephrotic syndrome [Unknown]
  - Arthralgia [Unknown]
  - Nephrolithiasis [Unknown]
  - Hypercholesterolaemia [Unknown]
  - Arthritis [Unknown]
  - Skin disorder [Unknown]
  - Abdominal pain upper [Unknown]
  - Generalised oedema [Unknown]
  - Proteinuria [Unknown]
  - Contusion [Unknown]
  - Skin atrophy [Unknown]
